FAERS Safety Report 4473452-9 (Version None)
Quarter: 2004Q3

REPORT INFORMATION
  Report Type: 
  Country: None (occurrence: None)
  Receive Date: 20040909
  Receipt Date: 20040521
  Transmission Date: 20050211
  Serious: Yes (Other)
  Sender: FDA-Public Use
  Company Number: A03200401647

PATIENT
  Sex: Female

DRUGS (8)
  1. ELOXATIN [Suspect]
     Indication: COLORECTAL CANCER
     Dosage: 150 MG OTHER - INTRAVENOUS NOS
     Route: 042
     Dates: start: 20040520, end: 20040520
  2. FLUOROURACIL [Concomitant]
  3. LEUCOVORIN CALCIUM [Concomitant]
  4. METOCLOPRAMIDE [Concomitant]
  5. LORAZEPAM [Concomitant]
  6. DEXAMETHASONE [Concomitant]
  7. CALCIUM [Concomitant]
  8. MAGNESIUM [Concomitant]

REACTIONS (3)
  - ANGIONEUROTIC OEDEMA [None]
  - FLUSHING [None]
  - SWELLING FACE [None]
